FAERS Safety Report 4365041-1 (Version None)
Quarter: 2004Q2

REPORT INFORMATION
  Report Type: 
  Country: None (occurrence: None)
  Receive Date: 20040521
  Receipt Date: 20040504
  Transmission Date: 20050107
  Serious: Yes (Hospitalization)
  Sender: FDA-Public Use
  Company Number: FR_031103121

PATIENT
  Age: 70 Year
  Sex: Male
  Weight: 73 kg

DRUGS (7)
  1. GEMZAR [Suspect]
     Indication: NON-SMALL CELL LUNG CANCER
     Dosage: 2500 MG/M2/OTHER
     Route: 042
     Dates: start: 20030317, end: 20030324
  2. PROZAC [Concomitant]
  3. OXAZEPAM [Concomitant]
  4. TANAKEN          (GINGKO BILOBA EXTRACT) [Concomitant]
  5. PROSCAR [Concomitant]
  6. OMIX (TAMSULOSIN HYDROCHLORIDE) [Concomitant]
  7. HEPT-A-MYL (HEPTAMINOL HYDROCHLORIDE) [Concomitant]

REACTIONS (2)
  - INFLAMMATION [None]
  - OEDEMA PERIPHERAL [None]
